FAERS Safety Report 4958603-1 (Version None)
Quarter: 2006Q1

REPORT INFORMATION
  Report Type: 
  Country: None (occurrence: None)
  Receive Date: 20060127
  Receipt Date: 20050118
  Transmission Date: 20060701
  Serious: Yes (Hospitalization)
  Sender: FDA-Public Use
  Company Number: 05-01-0080

PATIENT
  Age: 82 Year
  Sex: Female
  Weight: 62.5964 kg

DRUGS (5)
  1. CLOZAPINE [Suspect]
     Indication: BIPOLAR DISORDER
     Dosage: 300MG QD, ORAL
     Route: 048
     Dates: start: 20010201
  2. CLOZAPINE [Suspect]
     Indication: SCHIZOPHRENIA
     Dosage: 300MG QD, ORAL
     Route: 048
     Dates: start: 20010201
  3. DITROPAN [Concomitant]
  4. EXELON [Concomitant]
  5. LISINOPRIL [Concomitant]

REACTIONS (2)
  - PNEUMONIA [None]
  - PRE-EXISTING DISEASE [None]
